FAERS Safety Report 7957123-X (Version None)
Quarter: 2011Q4

REPORT INFORMATION
  Report Type: 
  Country: None (occurrence: None)
  Receive Date: 20111205
  Receipt Date: 20111124
  Transmission Date: 20120403
  Serious: Yes (Hospitalization)
  Sender: FDA-Public Use
  Company Number: CA-JNJFOC-20111110195

PATIENT
  Sex: Female
  Weight: 63 kg

DRUGS (4)
  1. ACETAMINOPHEN [Concomitant]
     Indication: PREMEDICATION
     Route: 048
  2. HYDROCORTISONE [Concomitant]
     Indication: PREMEDICATION
     Route: 042
  3. REMICADE [Suspect]
     Indication: CROHN'S DISEASE
     Route: 042
     Dates: start: 20110101
  4. DESLORATADINE [Concomitant]
     Indication: PREMEDICATION
     Route: 048

REACTIONS (5)
  - CONSTIPATION [None]
  - DIARRHOEA [None]
  - INTESTINAL OBSTRUCTION [None]
  - SCAR [None]
  - ABDOMINAL PAIN [None]
